FAERS Safety Report 20643900 (Version 1)
Quarter: 2022Q1

REPORT INFORMATION
  Report Type: Spontaneous
  Country: US (occurrence: None)
  Receive Date: 20220327
  Receipt Date: 20220327
  Transmission Date: 20220423
  Serious: Yes (Other)
  Sender: FDA-Public Use
  Company Number: None

PATIENT
  Age: 39 Year
  Sex: Female
  Weight: 60.75 kg

DRUGS (5)
  1. BUPRENORPHINE\NALOXONE [Suspect]
     Active Substance: BUPRENORPHINE\NALOXONE
     Indication: Drug dependence
     Dosage: FREQUENCY : TWICE A DAY;?
     Route: 060
     Dates: start: 20130714, end: 20220327
  2. IBUPROFEN [Concomitant]
     Active Substance: IBUPROFEN
  3. SUBOXONE [Concomitant]
     Active Substance: BUPRENORPHINE HYDROCHLORIDE\NALOXONE HYDROCHLORIDE
  4. ALDACTONE [Concomitant]
     Active Substance: SPIRONOLACTONE
  5. TRETINOIN [Concomitant]
     Active Substance: TRETINOIN

REACTIONS (2)
  - Tooth extraction [None]
  - Dental caries [None]

NARRATIVE: CASE EVENT DATE: 20130714
